FAERS Safety Report 6097094-7 (Version None)
Quarter: 2009Q1

REPORT INFORMATION
  Report Type: 
  Country: None (occurrence: None)
  Receive Date: 20090227
  Receipt Date: 20090216
  Transmission Date: 20090719
  Serious: Yes (Death)
  Sender: FDA-Public Use
  Company Number: US-AVENTIS-200911298US

PATIENT
  Age: 76 Year
  Sex: Female

DRUGS (2)
  1. LOVENOX [Suspect]
     Route: 030
  2. HEPARIN [Suspect]
     Route: 030

REACTIONS (3)
  - HEPARIN-INDUCED THROMBOCYTOPENIA [None]
  - INCORRECT ROUTE OF DRUG ADMINISTRATION [None]
  - THROMBOSIS [None]
